FAERS Safety Report 6234039-0 (Version None)
Quarter: 2009Q2

REPORT INFORMATION
  Report Type: 
  Country: None (occurrence: None)
  Receive Date: 20090616
  Receipt Date: 20090616
  Transmission Date: 20091009
  Serious: Yes (Other)
  Sender: FDA-Public Use
  Company Number: None

PATIENT
  Sex: Female
  Weight: 70.7611 kg

DRUGS (1)
  1. LEVAQUIN [Suspect]
     Indication: INFECTION PROPHYLAXIS
     Dosage: ONCE DAY
     Dates: start: 20090606, end: 20090608

REACTIONS (7)
  - ARTHRALGIA [None]
  - ERYTHEMA [None]
  - GAIT DISTURBANCE [None]
  - JOINT SWELLING [None]
  - JOINT WARMTH [None]
  - MUSCULOSKELETAL STIFFNESS [None]
  - TENDON PAIN [None]
